FAERS Safety Report 25063902 (Version 5)
Quarter: 2025Q3

REPORT INFORMATION
  Report Type: Spontaneous
  Country: US (occurrence: US)
  Receive Date: 20250311
  Receipt Date: 20250930
  Transmission Date: 20251020
  Serious: Yes (Other)
  Sender: PFIZER
  Company Number: US-PFIZER INC-202500054269

PATIENT
  Age: 53 Year
  Sex: Female

DRUGS (1)
  1. VELSIPITY [Suspect]
     Active Substance: ETRASIMOD ARGININE
     Indication: Colitis

REACTIONS (4)
  - Skin cancer [Unknown]
  - Immune system disorder [Unknown]
  - Conjunctivitis [Unknown]
  - Illness [Unknown]
